FAERS Safety Report 24112286 (Version 1)
Quarter: 2024Q3

REPORT INFORMATION
  Report Type: Report from Study
  Country: US (occurrence: None)
  Receive Date: 20240719
  Receipt Date: 20240719
  Transmission Date: 20241016
  Serious: Yes (Other)
  Sender: ASTRAZENECA
  Company Number: 2019SF39953

PATIENT
  Age: 71 Year
  Sex: Female

DRUGS (27)
  1. OMEPRAZOLE [Suspect]
     Active Substance: OMEPRAZOLE
     Route: 048
  2. CALQUENCE [Suspect]
     Active Substance: ACALABRUTINIB
     Indication: Mantle cell lymphoma
     Route: 048
     Dates: start: 20190924
  3. AMIODARONE HYDROCHLORIDE [Concomitant]
     Active Substance: AMIODARONE HYDROCHLORIDE
  4. AMLODIPINE [Concomitant]
     Active Substance: AMLODIPINE BESYLATE
  5. ASPIRIN [Concomitant]
     Active Substance: ASPIRIN
  6. ATIVAN [Concomitant]
     Active Substance: LORAZEPAM
  7. BIOTIN [Concomitant]
     Active Substance: BIOTIN
  8. BUMETANIDE [Concomitant]
     Active Substance: BUMETANIDE
  9. CARVEDILOL [Concomitant]
     Active Substance: CARVEDILOL
  10. CETIRIZINE [Concomitant]
     Active Substance: CETIRIZINE HYDROCHLORIDE
  11. CIPRO [Concomitant]
     Active Substance: CIPROFLOXACIN HYDROCHLORIDE
  12. COENZYME Q10 [Concomitant]
     Active Substance: DIETARY SUPPLEMENT\UBIDECARENONE
  13. DIFLUCAN [Concomitant]
     Active Substance: FLUCONAZOLE
  14. DIPHENHYDRAMINE [Concomitant]
     Active Substance: DIPHENHYDRAMINE
  15. ELIQUIS [Concomitant]
     Active Substance: APIXABAN
  16. FISH OIL [Concomitant]
     Active Substance: FISH OIL
  17. FUROSEMIDE [Concomitant]
     Active Substance: FUROSEMIDE
  18. ISOSORBIDE MONONITRATE [Concomitant]
     Active Substance: ISOSORBIDE MONONITRATE
  19. LOSARTAN POT TAB [Concomitant]
  20. LOVASTATI N [Concomitant]
  21. MS CONTIN [Concomitant]
     Active Substance: MORPHINE SULFATE
  22. NITROSTAT [Concomitant]
     Active Substance: NITROGLYCERIN
  23. PEPCID AC [Concomitant]
     Active Substance: FAMOTIDINE
  24. SYNTHROID [Concomitant]
     Active Substance: LEVOTHYROXINE SODIUM
  25. VITAMIN B12 [Concomitant]
     Active Substance: CYANOCOBALAMIN
  26. VITAMIN D3 [Concomitant]
     Active Substance: CHOLECALCIFEROL
  27. ZOFRAN [Concomitant]
     Active Substance: ONDANSETRON HYDROCHLORIDE

REACTIONS (3)
  - Mantle cell lymphoma [Unknown]
  - Headache [Recovered/Resolved]
  - Contusion [Unknown]
